FAERS Safety Report 7708393-4 (Version None)
Quarter: 2011Q3

REPORT INFORMATION
  Report Type: 
  Country: None (occurrence: None)
  Receive Date: 20110819
  Receipt Date: 20110615
  Transmission Date: 20111222
  Serious: Yes (Other)
  Sender: FDA-Public Use
  Company Number: HA11-141-AE

PATIENT
  Age: 31 Year
  Sex: Female
  Weight: 57.6068 kg

DRUGS (2)
  1. PROBIOTICS [Concomitant]
  2. SULFAMETHOXAZOLE AND TRIMETHOPRIM [Suspect]
     Indication: CYSTITIS
     Dosage: 1OR2 TAB/DAY FOR 10DAYS
     Dates: start: 20110211

REACTIONS (4)
  - ERYTHEMA [None]
  - DRUG HYPERSENSITIVITY [None]
  - LYMPHADENOPATHY [None]
  - PAIN [None]
